FAERS Safety Report 4991897-5 (Version None)
Quarter: 2006Q2

REPORT INFORMATION
  Report Type: 
  Country: None (occurrence: None)
  Receive Date: 20060504
  Receipt Date: 20051018
  Transmission Date: 20061013
  Serious: Yes (Hospitalization, Other)
  Sender: FDA-Public Use
  Company Number: US-MERCK-0510USA07628

PATIENT
  Age: 47 Year
  Sex: Male
  Weight: 89 kg

DRUGS (4)
  1. VIOXX [Suspect]
     Indication: ARTHRITIS
     Route: 048
     Dates: start: 20030606, end: 20031201
  2. VIOXX [Suspect]
     Route: 048
     Dates: end: 20040930
  3. ACETAMINOPHEN AND PROPOXYPHENE NAPSYLATE [Concomitant]
     Route: 065
     Dates: start: 20040313
  4. ASPIRIN [Concomitant]
     Route: 065
     Dates: start: 20030101, end: 20050101

REACTIONS (4)
  - CEREBROVASCULAR ACCIDENT [None]
  - HYPERTENSION [None]
  - HYPOTENSION [None]
  - SINUSITIS [None]
